FAERS Safety Report 8790166 (Version 3)
Quarter: 2012Q4

REPORT INFORMATION
  Report Type: Report from Study
  Country: FR (occurrence: FR)
  Receive Date: 20120914
  Receipt Date: 20121210
  Transmission Date: 20130627
  Serious: Yes (Death, Other)
  Sender: FDA-Public Use
  Company Number: FR-ASTELLAS-2012US007838

PATIENT
  Age: 65 None
  Sex: Female

DRUGS (3)
  1. ERLOTINIB TABLET [Suspect]
     Indication: NON-SMALL CELL LUNG CANCER
     Dosage: 150 mg, UID/QD
     Route: 048
     Dates: start: 20120110, end: 20120516
  2. DEDROGYL [Concomitant]
     Indication: PHLEBITIS
     Dosage: 3 drops, 5 mg, UID/QD
     Route: 048
     Dates: start: 20120426, end: 20120525
  3. NOROXINE [Concomitant]
     Indication: INFECTION
     Dosage: 400 mg, bid
     Route: 048
     Dates: start: 20120426, end: 20120525

REACTIONS (6)
  - Arterial stenosis [Unknown]
  - C-reactive protein abnormal [Unknown]
  - Sarcopenia [Unknown]
  - Venous thrombosis [Not Recovered/Not Resolved]
  - Phlebitis superficial [Unknown]
  - Malignant neoplasm progression [Fatal]
